FAERS Safety Report 10255479 (Version 2)
Quarter: 2014Q2

REPORT INFORMATION
  Report Type: Spontaneous
  Country: US (occurrence: US)
  Receive Date: 20140624
  Receipt Date: 20140624
  Transmission Date: 20141212
  Serious: Yes (Other)
  Sender: FDA-Public Use
  Company Number: CHPA2014US008265

PATIENT
  Age: 56 Year
  Sex: Male

DRUGS (3)
  1. PREVACID 24HR 15MG [Suspect]
     Indication: GASTROOESOPHAGEAL REFLUX DISEASE
     Dosage: 30 MG, TID
     Route: 048
  2. PREVACID 24HR 15MG [Suspect]
     Indication: INCORRECT DOSE ADMINISTERED
  3. PREVACID 24HR 15MG [Suspect]
     Indication: OFF LABEL USE

REACTIONS (4)
  - Oesophageal motility disorder [Not Recovered/Not Resolved]
  - Gastrooesophageal reflux disease [Not Recovered/Not Resolved]
  - Headache [Not Recovered/Not Resolved]
  - Diarrhoea [Not Recovered/Not Resolved]
